FAERS Safety Report 5942437-5 (Version None)
Quarter: 2008Q4

REPORT INFORMATION
  Report Type: 
  Country: None (occurrence: None)
  Receive Date: 20081105
  Receipt Date: 20081024
  Transmission Date: 20090506
  Serious: Yes (Other)
  Sender: FDA-Public Use
  Company Number: US-PFIZER INC-2008050990

PATIENT
  Age: 47 Year
  Sex: Female
  Weight: 94.3 kg

DRUGS (12)
  1. LYRICA [Suspect]
     Indication: FIBROMYALGIA
     Route: 048
     Dates: start: 20071221
  2. NEURONTIN [Suspect]
     Indication: BACK PAIN
     Dates: end: 20080317
  3. METHADONE HCL [Concomitant]
     Indication: PAIN
  4. CHANTIX [Concomitant]
     Route: 048
  5. CITALOPRAM [Concomitant]
  6. FLONASE [Concomitant]
     Route: 045
  7. LEVOTHYROXINE SODIUM [Concomitant]
     Route: 048
  8. LIDODERM [Concomitant]
     Dosage: TEXT:5% REMOVE AFTER 12 HOURS
     Route: 062
  9. LORATADINE [Concomitant]
     Route: 048
  10. SOMA [Concomitant]
     Route: 048
  11. NORTRIPTYLINE HCL [Concomitant]
     Route: 048
  12. OMEPRAZOLE [Concomitant]
     Route: 048

REACTIONS (29)
  - ALANINE AMINOTRANSFERASE INCREASED [None]
  - ANTINUCLEAR ANTIBODY POSITIVE [None]
  - ASPARTATE AMINOTRANSFERASE INCREASED [None]
  - ASTHENIA [None]
  - ATAXIA [None]
  - BACK PAIN [None]
  - BINOCULAR EYE MOVEMENT DISORDER [None]
  - BLINDNESS TRANSIENT [None]
  - BLISTER [None]
  - BURNS FIRST DEGREE [None]
  - CONFUSIONAL STATE [None]
  - DIPLOPIA [None]
  - DRUG DEPENDENCE [None]
  - DYSSTASIA [None]
  - EMOTIONAL DISTRESS [None]
  - ERYTHEMA MULTIFORME [None]
  - FATIGUE [None]
  - FEELING OF BODY TEMPERATURE CHANGE [None]
  - HYPERSENSITIVITY [None]
  - LYMPHOCYTE COUNT DECREASED [None]
  - MUSCULAR WEAKNESS [None]
  - NEUTROPHIL COUNT INCREASED [None]
  - OEDEMA PERIPHERAL [None]
  - PAIN [None]
  - PALLOR [None]
  - PANIC REACTION [None]
  - RASH [None]
  - SKIN EXFOLIATION [None]
  - TREMOR [None]
